FAERS Safety Report 10135841 (Version 1)
Quarter: 2014Q2

REPORT INFORMATION
  Report Type: Report from Study
  Country: US (occurrence: US)
  Receive Date: 20140428
  Receipt Date: 20140428
  Transmission Date: 20141212
  Serious: Yes (Hospitalization)
  Sender: FDA-Public Use
  Company Number: US-ABBVIE-14P-163-1226753-00

PATIENT
  Age: 63 Year
  Sex: Female
  Weight: 86.26 kg

DRUGS (5)
  1. HUMIRA [Suspect]
     Indication: RHEUMATOID ARTHRITIS
     Route: 058
     Dates: start: 201308, end: 201310
  2. AMLODIPINE [Concomitant]
     Indication: HYPERTENSION
  3. HYDROCHLOROTHIAZIDE [Concomitant]
     Indication: FLUID RETENTION
  4. BENAZEPRIL [Concomitant]
     Indication: HYPERTENSION
  5. HYDROXYCHLOROQUINE [Concomitant]
     Indication: OSTEOPOROSIS

REACTIONS (7)
  - Knee arthroplasty [Recovering/Resolving]
  - Large intestine polyp [Recovered/Resolved]
  - Gastric disorder [Recovered/Resolved]
  - Arthralgia [Recovering/Resolving]
  - Arthralgia [Recovering/Resolving]
  - Diarrhoea [Recovered/Resolved]
  - Arthralgia [Not Recovered/Not Resolved]
